FAERS Safety Report 10727149 (Version 1)
Quarter: 2015Q1

REPORT INFORMATION
  Report Type: Spontaneous
  Country: US (occurrence: US)
  Receive Date: 20150121
  Receipt Date: 20150121
  Transmission Date: 20150721
  Serious: No
  Sender: FDA-Public Use
  Company Number: US-BRISTOL-MYERS SQUIBB COMPANY-BMS-2015-000824

PATIENT
  Sex: Male

DRUGS (1)
  1. ERBITUX [Suspect]
     Active Substance: CETUXIMAB
     Indication: THROAT CANCER
     Dosage: UNK
     Route: 042
     Dates: start: 20141222

REACTIONS (5)
  - Fatigue [Unknown]
  - Nausea [Unknown]
  - Skin disorder [Unknown]
  - Haemorrhage [Unknown]
  - Rash [Unknown]
